FAERS Safety Report 19456615 (Version 3)
Quarter: 2021Q3

REPORT INFORMATION
  Report Type: Report from Study
  Country: None (occurrence: CA)
  Receive Date: 20210624
  Receipt Date: 20210805
  Transmission Date: 20211014
  Serious: Yes (Hospitalization)
  Sender: FDA-Public Use
  Company Number: CA-ABBVIE-21K-028-3962839-00

PATIENT
  Age: 42 Year
  Sex: Female

DRUGS (2)
  1. HUMIRA [Suspect]
     Active Substance: ADALIMUMAB
     Route: 058
     Dates: start: 2021
  2. HUMIRA [Suspect]
     Active Substance: ADALIMUMAB
     Indication: COLITIS ULCERATIVE
     Route: 058
     Dates: start: 20210211, end: 20210618

REACTIONS (5)
  - Chest pain [Recovering/Resolving]
  - Food allergy [Recovered/Resolved]
  - Dyspnoea [Recovering/Resolving]
  - Illness [Recovering/Resolving]
  - Throat tightness [Recovered/Resolved]

NARRATIVE: CASE EVENT DATE: 202106
